FAERS Safety Report 18313992 (Version 2)
Quarter: 2022Q2

REPORT INFORMATION
  Report Type: Spontaneous
  Country: US (occurrence: US)
  Receive Date: 20200925
  Receipt Date: 20220504
  Transmission Date: 20220721
  Serious: Yes (Hospitalization, Other)
  Sender: FDA-Public Use
  Company Number: US-AMGEN-USASP2020153650

PATIENT
  Sex: Female

DRUGS (3)
  1. CORLANOR [Suspect]
     Active Substance: IVABRADINE HYDROCHLORIDE
     Indication: Cardiac failure
     Dosage: 5 MILLIGRAM, BID
     Route: 065
     Dates: start: 2017, end: 2020
  2. CORLANOR [Suspect]
     Active Substance: IVABRADINE HYDROCHLORIDE
     Indication: Autonomic nervous system imbalance
     Dosage: 5 MILLIGRAM, BID
     Route: 065
     Dates: start: 20200911, end: 20201012
  3. CORLANOR [Suspect]
     Active Substance: IVABRADINE HYDROCHLORIDE
     Dosage: 5 MG / 5ML
     Route: 065
     Dates: start: 20201012

REACTIONS (8)
  - Cervix carcinoma [Unknown]
  - Barrett^s oesophagus [Unknown]
  - Coeliac disease [Unknown]
  - Hospitalisation [Unknown]
  - Food allergy [Unknown]
  - Milk allergy [Unknown]
  - Gastrointestinal disorder [Unknown]
  - Rash [Unknown]

NARRATIVE: CASE EVENT DATE: 20180101
